FAERS Safety Report 21784834 (Version 1)
Quarter: 2022Q4

REPORT INFORMATION
  Report Type: Spontaneous
  Country: US (occurrence: US)
  Receive Date: 20221227
  Receipt Date: 20221227
  Transmission Date: 20230113
  Serious: Yes (Hospitalization)
  Sender: FDA-Public Use
  Company Number: US-TAKEDA-2022TUS099460

PATIENT
  Age: 70 Year
  Sex: Male

DRUGS (1)
  1. KALBITOR [Suspect]
     Active Substance: ECALLANTIDE
     Indication: Product used for unknown indication
     Dosage: 30 MILLIGRAM
     Route: 058

REACTIONS (1)
  - Hereditary angioedema [Unknown]
